FAERS Safety Report 21249010 (Version 1)
Quarter: 2022Q3

REPORT INFORMATION
  Report Type: Spontaneous
  Country: US (occurrence: US)
  Receive Date: 20220824
  Receipt Date: 20220824
  Transmission Date: 20221026
  Serious: Yes (Other)
  Sender: FDA-Public Use
  Company Number: US-PFIZER INC-202201082250

PATIENT
  Sex: Female

DRUGS (1)
  1. GABAPENTIN [Suspect]
     Active Substance: GABAPENTIN
     Dosage: 300 MG, 4X/DAY (FOUR TIMES A DAY)

REACTIONS (8)
  - Seizure [Unknown]
  - Pain [Unknown]
  - Chills [Unknown]
  - Exfoliative rash [Unknown]
  - Eyelid exfoliation [Unknown]
  - Eye swelling [Unknown]
  - Hypersensitivity [Unknown]
  - Swelling face [Unknown]
